FAERS Safety Report 7958110-8 (Version None)
Quarter: 2011Q4

REPORT INFORMATION
  Report Type: 
  Country: None (occurrence: None)
  Receive Date: 20111205
  Receipt Date: 20111122
  Transmission Date: 20120403
  Serious: Yes (Hospitalization)
  Sender: FDA-Public Use
  Company Number: PT-MYLANLABS-2011S1024553

PATIENT
  Age: 68 Year
  Sex: Male

DRUGS (9)
  1. MYCOPHENOLATE MOFETIL [Suspect]
     Indication: IMMUNOSUPPRESSION
     Route: 065
     Dates: start: 20080201
  2. MYCOPHENOLATE MOFETIL [Suspect]
     Route: 065
     Dates: start: 20080201
  3. DACLIZUMAB [Suspect]
     Indication: IMMUNOSUPPRESSION
     Route: 065
     Dates: start: 20080201
  4. GANCICLOVIR [Concomitant]
     Indication: CYTOMEGALOVIRUS INFECTION
     Route: 065
  5. PREDNISOLONE [Suspect]
     Indication: IMMUNOSUPPRESSION
     Route: 065
     Dates: start: 20080201
  6. PREDNISOLONE [Suspect]
     Dosage: 10MG QD
     Route: 065
     Dates: start: 20080201
  7. CYCLOSPORINE [Suspect]
     Indication: IMMUNOSUPPRESSION
     Route: 065
     Dates: start: 20080201
  8. IMMUNE GLOBULIN NOS [Concomitant]
     Indication: TRANSPLANT REJECTION
     Route: 042
     Dates: start: 20080501
  9. CYCLOSPORINE [Suspect]
     Route: 065
     Dates: start: 20080201

REACTIONS (4)
  - LEUKOPENIA [None]
  - ACUTE RESPIRATORY DISTRESS SYNDROME [None]
  - CYTOMEGALOVIRUS INFECTION [None]
  - CRYPTOCOCCOSIS [None]
